FAERS Safety Report 14491951 (Version 1)
Quarter: 2018Q1

REPORT INFORMATION
  Report Type: Spontaneous
  Country: US (occurrence: US)
  Receive Date: 20180205
  Receipt Date: 20180205
  Transmission Date: 20180509
  Serious: No
  Sender: FDA-Public Use
  Company Number: None

PATIENT
  Age: 59 Year
  Sex: Female

DRUGS (1)
  1. FORTEO [Suspect]
     Active Substance: TERIPARATIDE

REACTIONS (6)
  - Palpitations [None]
  - Bone disorder [None]
  - Fatigue [None]
  - Therapy cessation [None]
  - Bone pain [None]
  - Feeling abnormal [None]

NARRATIVE: CASE EVENT DATE: 20170113
